FAERS Safety Report 6060635-X (Version None)
Quarter: 2009Q1

REPORT INFORMATION
  Report Type: 
  Country: None (occurrence: None)
  Receive Date: 20090202
  Receipt Date: 20090122
  Transmission Date: 20090719
  Serious: Yes (Death, Other)
  Sender: FDA-Public Use
  Company Number: JP-BRISTOL-MYERS SQUIBB COMPANY-14481626

PATIENT
  Age: 63 Year
  Sex: Female
  Weight: 55 kg

DRUGS (8)
  1. ABILIFY [Suspect]
     Indication: SCHIZOPHRENIA
     Dosage: 14JAN08-10FEB08:12MG/D 11FEB08-15DEC08:24MG/D
     Route: 048
     Dates: start: 20080211, end: 20081215
  2. FLUNITRAZEPAM [Concomitant]
     Dosage: FORMULATION: TAB
     Dates: end: 20081215
  3. ZYPREXA [Concomitant]
     Dates: end: 20080629
  4. SENNOSIDE A [Concomitant]
     Dosage: FORMULATION: TAB
     Dates: end: 20080629
  5. SELOKEN [Concomitant]
     Dosage: FORMULATION: TAB
     Dates: end: 20081215
  6. GASTER [Concomitant]
     Dates: end: 20081215
  7. BENZALIN [Concomitant]
     Dates: start: 20070131, end: 20081215
  8. DEPAS [Concomitant]
     Dates: start: 20080602, end: 20081215

REACTIONS (11)
  - ACUTE RESPIRATORY FAILURE [None]
  - ANAEMIA [None]
  - ANOREXIA [None]
  - BLOOD CREATINE PHOSPHOKINASE INCREASED [None]
  - CARDIAC ARREST [None]
  - CARDIAC FAILURE ACUTE [None]
  - DECREASED APPETITE [None]
  - DEPRESSED LEVEL OF CONSCIOUSNESS [None]
  - DIET REFUSAL [None]
  - DIZZINESS [None]
  - RESPIRATORY ARREST [None]
